FAERS Safety Report 16976296 (Version 2)
Quarter: 2019Q4

REPORT INFORMATION
  Report Type: Spontaneous
  Country: US (occurrence: US)
  Receive Date: 20191030
  Receipt Date: 20191204
  Transmission Date: 20200122
  Serious: No
  Sender: FDA-Public Use
  Company Number: US-BAYER-2019-188716

PATIENT
  Age: 35 Year
  Sex: Female

DRUGS (2)
  1. MIRENA [Suspect]
     Active Substance: LEVONORGESTREL
     Indication: CONTRACEPTION
     Dosage: 20 MCG/24HR, CONT
     Route: 015
     Dates: start: 201706, end: 20170912
  2. MIRENA [Suspect]
     Active Substance: LEVONORGESTREL
     Indication: CONTRACEPTION

REACTIONS (1)
  - Vulvovaginal mycotic infection [Not Recovered/Not Resolved]

NARRATIVE: CASE EVENT DATE: 20170912
